FAERS Safety Report 8976411 (Version 1)
Quarter: 2012Q4

REPORT INFORMATION
  Report Type: 
  Country: IT (occurrence: IT)
  Receive Date: 20121220
  Receipt Date: 20121220
  Transmission Date: 20130627
  Serious: Yes (Other)
  Sender: FDA-Public Use
  Company Number: IT-BRISTOL-MYERS SQUIBB COMPANY-17204306

PATIENT
  Age: 73 Year
  Sex: Male

DRUGS (3)
  1. COUMADIN TABS 5 MG [Suspect]
     Indication: THROMBOSIS
     Dosage: 1 Df- 1 dosage unit.
     Route: 048
     Dates: start: 20120101, end: 20120410
  2. IGROTON [Concomitant]
     Dosage: tabs.
     Route: 048
  3. LOBIVON [Concomitant]
     Dosage: tabs.
     Route: 048

REACTIONS (4)
  - Anaemia [Recovering/Resolving]
  - Chest pain [Recovering/Resolving]
  - Dyspnoea [Recovering/Resolving]
  - Haemorrhage [Unknown]
